FAERS Safety Report 8691438 (Version 8)
Quarter: 2013Q3

REPORT INFORMATION
  Report Type: Spontaneous
  Country: US (occurrence: US)
  Receive Date: 20120730
  Receipt Date: 20130729
  Transmission Date: 20140515
  Serious: Yes (Other)
  Sender: FDA-Public Use
  Company Number: US-PFIZER INC-2012180082

PATIENT
  Age: 60 Year
  Sex: Male

DRUGS (13)
  1. INLYTA [Suspect]
     Indication: RENAL CANCER
     Dosage: 5 MG, 2X/DAY (ONE TAB)
     Dates: start: 201207
  2. INLYTA [Suspect]
     Dosage: 10 MG, 2X/DAY
     Dates: start: 201207
  3. INLYTA [Suspect]
     Dosage: 15 MG, 1X/DAY
     Dates: start: 201207
  4. INLYTA [Suspect]
     Dosage: 5 MG, ALTERNATE DAY
     Dates: start: 201207
  5. INLYTA [Suspect]
     Dosage: 10 MG, ALTERNATE DAY
     Dates: start: 201207
  6. INLYTA [Suspect]
     Dosage: 1 DF, 1X/DAY (1 PILL EVERY MORNING)
     Dates: start: 20130315
  7. INLYTA [Suspect]
     Dosage: 1 DF, ALTERNATE DAY (ONE PILL EVERY OTHER NIGHT)
     Dates: start: 20130315
  8. INLYTA [Suspect]
     Dosage: 1 DF, 1X/DAY (1 PILL EVERY MORNING)
     Dates: start: 20130416
  9. INLYTA [Suspect]
     Dosage: 1 DF, ALTERNATE DAY (ONE PILL EVERY OTHER NIGHT)
     Dates: start: 20130416
  10. INLYTA [Suspect]
     Dosage: 1 DF, (1 PILL EVERY MORNING AND ONE PILL EVERY OTHER NIGHT)
     Dates: start: 20130416
  11. INLYTA [Suspect]
     Dosage: 1 DF, (1 PILL EVERY MORNING AND ONE PILL EVERY OTHER NIGHT)
     Dates: start: 20130416
  12. INLYTA [Suspect]
     Dosage: 1 DF, (1 PILL EVERY MORNING AND ONE PILL EVERY OTHER NIGHT)
     Dates: start: 20130416
  13. INLYTA [Suspect]
     Dosage: 1 DF, (1 PILL EVERY MORNING AND ONE PILL EVERY OTHER NIGHT)
     Dates: start: 20130416

REACTIONS (13)
  - Nephrolithiasis [Unknown]
  - Blood pressure increased [Unknown]
  - Fatigue [Not Recovered/Not Resolved]
  - Dysphonia [Recovering/Resolving]
  - Dyspepsia [Unknown]
  - Arthralgia [Recovering/Resolving]
  - Pain in extremity [Not Recovered/Not Resolved]
  - Chest discomfort [Unknown]
  - Faeces hard [Unknown]
  - Diarrhoea [Not Recovered/Not Resolved]
  - Abdominal pain upper [Recovering/Resolving]
  - Back pain [Unknown]
  - Flatulence [Unknown]
